FAERS Safety Report 10006187 (Version 2)
Quarter: 2014Q1

REPORT INFORMATION
  Report Type: Spontaneous
  Country: US (occurrence: US)
  Receive Date: 20140313
  Receipt Date: 20140313
  Transmission Date: 20141002
  Serious: Yes (Other)
  Sender: FDA-Public Use
  Company Number: US-ASTELLAS-2014US002305

PATIENT
  Age: 78 Year
  Sex: Male

DRUGS (1)
  1. LEXISCAN [Suspect]
     Indication: SCAN MYOCARDIAL PERFUSION
     Dosage: UNK
     Route: 042
     Dates: start: 20140226, end: 20140226

REACTIONS (4)
  - Joint stiffness [Recovered/Resolved]
  - Sensation of heaviness [Recovered/Resolved]
  - Chest pain [Recovered/Resolved]
  - Myalgia [Recovered/Resolved]
